FAERS Safety Report 22334275 (Version 1)
Quarter: 2023Q2

REPORT INFORMATION
  Report Type: Spontaneous
  Country: US (occurrence: US)
  Receive Date: 20230517
  Receipt Date: 20230517
  Transmission Date: 20230721
  Serious: No
  Sender: FDA-Public Use
  Company Number: US-NOVOPROD-1005362

PATIENT
  Age: 14 Year
  Sex: Male

DRUGS (1)
  1. NORDITROPIN [Suspect]
     Active Substance: SOMATROPIN
     Indication: Product used for unknown indication
     Route: 058
     Dates: start: 20220927

REACTIONS (3)
  - Nervousness [Recovering/Resolving]
  - Injection site pain [Recovering/Resolving]
  - Needle issue [Recovering/Resolving]

NARRATIVE: CASE EVENT DATE: 20220927
